FAERS Safety Report 9768293 (Version 2)
Quarter: 2013Q4

REPORT INFORMATION
  Report Type: Spontaneous
  Country: SE (occurrence: SE)
  Receive Date: 20131217
  Receipt Date: 20131231
  Transmission Date: 20140711
  Serious: Yes (Other)
  Sender: FDA-Public Use
  Company Number: SE-ACTAVIS-2013-22698

PATIENT
  Age: 16 Year
  Sex: Female
  Weight: 53 kg

DRUGS (1)
  1. LEVETIRACETAM ACTAVIS [Suspect]
     Indication: EPILEPSY
     Dosage: 250 MG, 6 DF, DAILY (3 TABLETS IN THE MORNING AND 3 TABLETS IN THE EVENING)
     Route: 065
     Dates: start: 201308

REACTIONS (6)
  - Depression [Not Recovered/Not Resolved]
  - Disturbance in attention [Not Recovered/Not Resolved]
  - Weight decreased [Not Recovered/Not Resolved]
  - Decreased appetite [Not Recovered/Not Resolved]
  - Muscle spasms [Not Recovered/Not Resolved]
  - Fatigue [Not Recovered/Not Resolved]
